FAERS Safety Report 8026972-4 (Version None)
Quarter: 2012Q1

REPORT INFORMATION
  Report Type: 
  Country: None (occurrence: None)
  Receive Date: 20120106
  Receipt Date: 20120103
  Transmission Date: 20120608
  Serious: Yes (Other)
  Sender: FDA-Public Use
  Company Number: US-PFIZER INC-2011286029

PATIENT
  Sex: Female
  Weight: 95.3 kg

DRUGS (5)
  1. PREMPRO [Concomitant]
     Indication: PREMATURE MENOPAUSE
     Dosage: UNK
  2. EFFEXOR XR [Suspect]
     Dosage: 225 MG, DAILY
     Route: 048
     Dates: start: 20110201
  3. EFFEXOR XR [Suspect]
     Dosage: 150 MG, DAILY
     Route: 048
     Dates: start: 20050101
  4. SYNTHROID [Concomitant]
     Indication: HYPOTHYROIDISM
     Dosage: UNK
  5. EFFEXOR XR [Suspect]
     Indication: DEPRESSION
     Dosage: UNK
     Route: 048
     Dates: start: 19990101, end: 20040101

REACTIONS (8)
  - DEPRESSED MOOD [None]
  - CRYING [None]
  - EMOTIONAL DISORDER [None]
  - STRESS [None]
  - SPEECH DISORDER [None]
  - NERVE CONDUCTION STUDIES ABNORMAL [None]
  - DISTURBANCE IN ATTENTION [None]
  - ACTIVITIES OF DAILY LIVING IMPAIRED [None]
